FAERS Safety Report 6171270-7 (Version None)
Quarter: 2009Q2

REPORT INFORMATION
  Report Type: 
  Country: None (occurrence: None)
  Receive Date: 20090428
  Receipt Date: 20090428
  Transmission Date: 20091009
  Serious: Yes (Hospitalization)
  Sender: FDA-Public Use
  Company Number: None

PATIENT
  Age: 48 Year
  Sex: Female
  Weight: 65.7716 kg

DRUGS (2)
  1. DIOVAN [Suspect]
     Indication: HYPERTENSION
     Dosage: 80MG DAILY PO
     Route: 048
     Dates: start: 20010215, end: 20080110
  2. DIOVAN [Suspect]
     Indication: HYPERTENSION
     Dosage: 80MG DAILY PO
     Route: 048
     Dates: start: 20080325, end: 20090425

REACTIONS (2)
  - CHEST DISCOMFORT [None]
  - PALPITATIONS [None]
